FAERS Safety Report 22110557 (Version 2)
Quarter: 2023Q1

REPORT INFORMATION
  Report Type: Report from Study
  Country: DK (occurrence: DK)
  Receive Date: 20230317
  Receipt Date: 20230324
  Transmission Date: 20230418
  Serious: Yes (Hospitalization)
  Sender: FDA-Public Use
  Company Number: DK-KARYOPHARM-2023KPT000972

PATIENT
  Age: 82 Year
  Sex: Male

DRUGS (14)
  1. SELINEXOR [Suspect]
     Active Substance: SELINEXOR
     Indication: Plasma cell myeloma
     Dosage: 80 MG, WEEKLY
     Route: 048
     Dates: start: 20221013, end: 20230224
  2. SELINEXOR [Suspect]
     Active Substance: SELINEXOR
     Dosage: 40 MG, WEEKLY
     Route: 048
     Dates: start: 20230119
  3. VITAMINS NOS [Concomitant]
     Active Substance: VITAMINS
     Indication: Vitamin supplementation
     Dosage: 1 TABLET IN THE MORNING
     Route: 048
     Dates: start: 20221220
  4. UNIKALK SILVER [Concomitant]
     Indication: Prophylaxis
     Dosage: 1 TABLET IN THE MORNING AND 1 IN THE EVENING
     Dates: start: 20221013
  5. MABLET [Concomitant]
     Indication: Magnesium deficiency
     Dosage: 360 MG, QD
     Dates: start: 20230216
  6. FRAGMIN [Concomitant]
     Active Substance: DALTEPARIN SODIUM
     Indication: Thrombosis prophylaxis
     Dosage: 5000 IU, QD
     Dates: start: 20221013
  7. DICLOXACILLIN [Concomitant]
     Active Substance: DICLOXACILLIN
     Indication: Infection
     Dosage: 2 CAPSULES, EACH IN THE MORNING, MIDDAY, EVENING, AND NIGHT
     Dates: start: 20230105, end: 20230315
  8. DICLOXACILLIN [Concomitant]
     Active Substance: DICLOXACILLIN
     Dosage: 2 CAPSULES, EACH IN THE MORNING AND MIDDAY
     Dates: start: 20230316, end: 20230316
  9. SULFAMETHOXAZOLE\TRIMETHOPRIM [Concomitant]
     Active Substance: SULFAMETHOXAZOLE\TRIMETHOPRIM
     Indication: Infection
     Dosage: 1 TABLET, QD
     Dates: start: 20221219
  10. ACYCLOVIR [Concomitant]
     Active Substance: ACYCLOVIR
     Indication: Herpes virus infection
     Dosage: 1 TABLET IN THE MORNING AND 1 IN THE EVENING
     Dates: start: 20221013
  11. EMEND [Concomitant]
     Active Substance: APREPITANT
     Indication: Nausea
  12. IMOLOPE [Concomitant]
     Indication: Diarrhoea
     Dosage: 1 TABLET, 8 TIMES DAILY (AS REQUIRED)
     Dates: start: 20230210
  13. MUCOLYSIN [ACETYLCYSTEINE] [Concomitant]
     Indication: Secretion discharge
     Dosage: 1 TABLET, 3 TIMES DAILY (AS REQUIRED)
     Dates: start: 20230214
  14. ACETAMINOPHEN [Concomitant]
     Active Substance: ACETAMINOPHEN
     Indication: Pain
     Dosage: 2 TABLETS, PRN
     Dates: start: 20221124

REACTIONS (1)
  - COVID-19 [Recovered/Resolved]

NARRATIVE: CASE EVENT DATE: 20230307
